FAERS Safety Report 9788009 (Version 2)
Quarter: 2013Q4

REPORT INFORMATION
  Report Type: Spontaneous
  Country: US (occurrence: US)
  Receive Date: 20131230
  Receipt Date: 20131230
  Transmission Date: 20140711
  Serious: Yes (Other)
  Sender: FDA-Public Use
  Company Number: US-PFIZER INC-2013350700

PATIENT
  Age: 47 Year
  Sex: Male

DRUGS (2)
  1. LYRICA [Suspect]
     Indication: POST-TRAUMATIC STRESS DISORDER
     Dosage: UNK
  2. LYRICA [Suspect]
     Indication: TRIGEMINAL NEURALGIA

REACTIONS (4)
  - Off label use [Recovering/Resolving]
  - Post-traumatic stress disorder [Recovering/Resolving]
  - Hypervigilance [Recovering/Resolving]
  - Abnormal behaviour [Recovering/Resolving]
